FAERS Safety Report 6248960-0 (Version None)
Quarter: 2009Q2

REPORT INFORMATION
  Report Type: 
  Country: None (occurrence: None)
  Receive Date: 20090629
  Receipt Date: 20090518
  Transmission Date: 20091009
  Serious: No
  Sender: FDA-Public Use
  Company Number: US-TYCO HEALTHCARE/MALLINCKRODT-T200901083

PATIENT
  Age: 44 Year
  Sex: Male

DRUGS (13)
  1. TECHNETIUM TC 99M SESTAMIBI [Suspect]
     Indication: SCAN MYOCARDIAL PERFUSION
     Dosage: UNK, SINGLE
     Route: 042
     Dates: start: 20090518, end: 20090518
  2. ULTRA-TECHNEKOW [Concomitant]
     Indication: SCAN MYOCARDIAL PERFUSION
     Dosage: 9.29 MCI, SINGLE
     Route: 042
     Dates: start: 20090518, end: 20090518
  3. TORADOL [Concomitant]
     Route: 048
  4. HYDROMORPHONE [Concomitant]
     Route: 048
  5. ASPIRIN [Concomitant]
     Route: 048
  6. METOPROLOL SUCCINATE [Concomitant]
     Route: 048
  7. ZOLPIDEM TARTRATE [Concomitant]
     Route: 048
  8. CLONAZEPAM [Concomitant]
     Route: 048
  9. POTASSIUM CHLORIDE [Concomitant]
     Route: 048
  10. PAROXETINE HCL [Concomitant]
     Route: 048
  11. BUPROPION HCL [Concomitant]
     Route: 048
  12. NICOTINE [Concomitant]
     Route: 062
  13. PANTOPRAZOLE SODIUM [Concomitant]
     Route: 048

REACTIONS (1)
  - DRUG INEFFECTIVE [None]
